FAERS Safety Report 8549168-6 (Version None)
Quarter: 2012Q3

REPORT INFORMATION
  Report Type: 
  Country: None (occurrence: None)
  Receive Date: 20120730
  Receipt Date: 20120727
  Transmission Date: 20120928
  Serious: Yes (Death, Hospitalization)
  Sender: FDA-Public Use
  Company Number: BR-B.I. PHARMACEUTICALS,INC./RIDGEFIELD-2012-BR-00851BR

PATIENT
  Sex: Female

DRUGS (4)
  1. MICARDIS [Suspect]
     Indication: HYPERTENSION
     Dosage: 80 MG
     Route: 048
     Dates: start: 20070101, end: 20120630
  2. ATENOLOL [Concomitant]
     Indication: ARRHYTHMIA
  3. TAPAZOL [Concomitant]
     Indication: THYROID DISORDER
  4. OMEPRAZOLE [Concomitant]
     Indication: ABDOMINAL DISCOMFORT

REACTIONS (2)
  - RESPIRATORY FAILURE [None]
  - LUNG CANCER METASTATIC [None]
